FAERS Safety Report 4933701-7 (Version None)
Quarter: 2006Q1

REPORT INFORMATION
  Report Type: 
  Country: None (occurrence: None)
  Receive Date: 20060306
  Receipt Date: 20040916
  Transmission Date: 20060701
  Serious: Yes (Other)
  Sender: FDA-Public Use
  Company Number: JP-AVENTIS-200610241JP

PATIENT
  Age: 28 Year
  Sex: Female

DRUGS (5)
  1. LANTUS [Suspect]
     Indication: DIABETES MELLITUS INSULIN-DEPENDENT
     Dosage: DOSE: 12 TO 16 UNITS
     Route: 058
     Dates: start: 20040221, end: 20040724
  2. OPTIPEN (INSULIN PUMP) [Suspect]
  3. HUMALOG [Concomitant]
     Route: 058
  4. THYRADIN [Concomitant]
     Dosage: DOSE: 25 - 50
     Route: 048
  5. HUMULIN R [Concomitant]
     Route: 058

REACTIONS (6)
  - ANTI-THYROID ANTIBODY POSITIVE [None]
  - BETA HAEMOLYTIC STREPTOCOCCAL INFECTION [None]
  - DIABETES MELLITUS INADEQUATE CONTROL [None]
  - DRUG EXPOSURE DURING PREGNANCY [None]
  - PREMATURE BABY [None]
  - SMALL FOR DATES BABY [None]
